FAERS Safety Report 10535791 (Version 2)
Quarter: 2014Q4

REPORT INFORMATION
  Report Type: Spontaneous
  Country: US (occurrence: US)
  Receive Date: 20141022
  Receipt Date: 20141022
  Transmission Date: 20150529
  Serious: No
  Sender: FDA-Public Use
  Company Number: US-RECKITT BENCKISER PHARMACEUTICAL, INC-RB-57172-2013

PATIENT

DRUGS (2)
  1. SUBOXONE [Suspect]
     Active Substance: BUPRENORPHINE HYDROCHLORIDE\NALOXONE HYDROCHLORIDE
     Indication: DRUG DEPENDENCE
     Dosage: SUBOXONE FILM
     Route: 060
     Dates: start: 2012
  2. CIGARETTES [Concomitant]
     Active Substance: NICOTINE
     Indication: NICOTINE DEPENDENCE
     Dosage: THE PATIENT WAS SMOKING  LESS THAN1 PACK/DAY
     Route: 055

REACTIONS (5)
  - Sensation of foreign body [Unknown]
  - Throat tightness [Not Recovered/Not Resolved]
  - Tongue disorder [Unknown]
  - Drug ineffective [Unknown]
  - Burning sensation [Unknown]

NARRATIVE: CASE EVENT DATE: 2012
